FAERS Safety Report 11387466 (Version 1)
Quarter: 2015Q3

REPORT INFORMATION
  Report Type: Spontaneous
  Country: US (occurrence: US)
  Receive Date: 20150817
  Receipt Date: 20150817
  Transmission Date: 20151125
  Serious: No
  Sender: FDA-Public Use
  Company Number: US-ASTRAZENECA-2008BM13449

PATIENT
  Age: 51 Year
  Sex: Female

DRUGS (10)
  1. BYETTA [Suspect]
     Active Substance: EXENATIDE
     Indication: TYPE 2 DIABETES MELLITUS
     Route: 058
     Dates: start: 200806, end: 200807
  2. GLIPIZIDE. [Concomitant]
     Active Substance: GLIPIZIDE
     Indication: TYPE 2 DIABETES MELLITUS
     Dosage: 2.5 MG, QD
     Route: 048
     Dates: start: 200809
  3. BYETTA [Suspect]
     Active Substance: EXENATIDE
     Indication: TYPE 2 DIABETES MELLITUS
     Route: 058
     Dates: start: 200808
  4. BYETTA [Suspect]
     Active Substance: EXENATIDE
     Indication: TYPE 2 DIABETES MELLITUS
     Route: 058
     Dates: start: 200803, end: 200806
  5. RELAFEN [Concomitant]
     Active Substance: NABUMETONE
     Indication: FIBROMYALGIA
     Dosage: UNK UNK, PRN
  6. DOXYCYCLINE. [Concomitant]
     Active Substance: DOXYCYCLINE
     Dosage: UNK
     Route: 048
     Dates: start: 2008, end: 2008
  7. TRULICITY [Suspect]
     Active Substance: DULAGLUTIDE
     Route: 065
     Dates: start: 20150703, end: 20150703
  8. INVOKANA [Concomitant]
     Active Substance: CANAGLIFLOZIN
  9. METFORMIN [Concomitant]
     Active Substance: METFORMIN HYDROCHLORIDE
     Indication: TYPE 2 DIABETES MELLITUS
     Dosage: UNK
     Route: 048
     Dates: start: 200808, end: 2008
  10. PREDNISONE. [Concomitant]
     Active Substance: PREDNISONE
     Dosage: UNK
     Route: 048
     Dates: start: 200807, end: 2008

REACTIONS (12)
  - Blood glucose increased [Unknown]
  - Muscular weakness [Recovered/Resolved]
  - Product quality issue [Unknown]
  - Nausea [Recovered/Resolved]
  - Abdominal distension [Recovered/Resolved]
  - Eructation [Recovered/Resolved]
  - Diarrhoea [Recovered/Resolved]
  - Feeling jittery [Recovered/Resolved]
  - Dyspepsia [Recovered/Resolved]
  - Decreased appetite [Unknown]
  - Respiratory tract infection [Recovering/Resolving]
  - Glycosylated haemoglobin increased [Unknown]

NARRATIVE: CASE EVENT DATE: 200803
